FAERS Safety Report 8943619 (Version 3)
Quarter: 2013Q1

REPORT INFORMATION
  Report Type: Report from Study
  Country: DE (occurrence: DE)
  Receive Date: 20121203
  Receipt Date: 20130215
  Transmission Date: 20140127
  Serious: Yes (Other)
  Sender: FDA-Public Use
  Company Number: DE-OTSUKA-EU-2011-10226

PATIENT
  Sex: Female

DRUGS (34)
  1. SAMSCA [Suspect]
     Indication: INAPPROPRIATE ANTIDIURETIC HORMONE SECRETION
     Dosage: 15 MG MILLIGRAM(S), DAILY DOSE
     Route: 048
     Dates: start: 20101028, end: 20101105
  2. SAMSCA [Suspect]
     Dosage: 15 MG MILLIGRAM(S), DAILY DOSE
     Route: 048
     Dates: start: 20101113, end: 20111016
  3. SAMSCA [Suspect]
     Dosage: 15 MG MILLIGRAM(S), QOD
     Route: 048
     Dates: start: 20101117, end: 20110306
  4. SAMSCA [Suspect]
     Dosage: 7.5 MG MILLIGRAM(S), QOD
     Route: 048
     Dates: start: 20110309, end: 201208
  5. RAMIPRIL [Concomitant]
     Indication: HYPERTENSION
     Dosage: 5 MG MILLIGRAM(S), DAILY DOSE
     Route: 048
     Dates: start: 20101029
  6. MARCUMAR [Concomitant]
     Indication: ATRIAL FIBRILLATION
     Dosage: 3 MG MILLIGRAM(S), DAILY DOSE
     Route: 048
     Dates: start: 20101027
  7. PANTOZOL [Concomitant]
     Indication: PROPHYLAXIS
     Dosage: 40 MG MILLIGRAM(S), DAILY DOSE
     Route: 048
     Dates: start: 20101027
  8. BELOC-ZOK [Concomitant]
     Indication: HYPERTENSION
     Dosage: 47.5 MG MILLIGRAM(S), DAILY DOSE
     Route: 048
     Dates: start: 20101027
  9. BELOC-ZOK [Concomitant]
     Indication: CORONARY ARTERY DISEASE
  10. UNACID PD [Concomitant]
     Indication: URINARY TRACT INFECTION
     Dosage: 4 DF DOSAGE FORM, DAILY DOSE
     Route: 048
     Dates: start: 20101103, end: 20101108
  11. DIGITOXIN [Concomitant]
     Indication: ATRIAL FIBRILLATION
     Dosage: 0.07 MG MILLIGRAM(S), DAILY DOSE
     Route: 048
     Dates: start: 20101029
  12. DIGITOXIN [Concomitant]
     Indication: CARDIAC FAILURE
  13. ZOPICLONE [Concomitant]
     Indication: SLEEP DISORDER
     Dosage: 3.5 MG MILLIGRAM(S), DAILY DOSE
     Route: 048
     Dates: start: 20101108
  14. NITROFURANTOIN [Concomitant]
     Indication: URINARY TRACT INFECTION
     Dosage: 2 DF DOSAGE FORM, DAILY DOSE
     Route: 048
     Dates: start: 20110228, end: 20110305
  15. KLACID [Concomitant]
     Indication: CHRONIC OBSTRUCTIVE PULMONARY DISEASE
     Dosage: 500 MG MILLIGRAM(S), DAILY DOSE
     Route: 048
     Dates: start: 20110306, end: 20110307
  16. KLACID [Concomitant]
     Dosage: 1000 MG MILLIGRAM(S), DAILY DOSE
     Route: 048
     Dates: start: 20110307, end: 20110316
  17. CEFPODOXIME [Concomitant]
     Indication: URINARY TRACT INFECTION
     Dosage: 400 MG MILLIGRAM(S), DAILY DOSE
     Route: 048
     Dates: start: 20110310, end: 20110316
  18. SPIRONOLACTONE [Concomitant]
     Indication: CARDIAC FAILURE
     Dosage: 25 MG MILLIGRAM(S), DAILY DOSE
     Route: 048
     Dates: start: 2011
  19. HCT [Concomitant]
     Indication: CARDIAC FAILURE
     Dosage: 1 DF DOSAGE FORM, DAILY DOSE
     Route: 048
     Dates: start: 2011
  20. HCT [Concomitant]
     Indication: CORONARY ARTERY DISEASE
  21. HCT [Concomitant]
     Indication: HYPERTENSION
  22. TRIAMTEREN [Concomitant]
     Indication: CARDIAC FAILURE
     Dosage: 1 DF DOSAGE FORM, DAILY DOSE
     Route: 048
     Dates: start: 2011
  23. TRIAMTEREN [Concomitant]
     Indication: CORONARY ARTERY DISEASE
  24. TRIAMTEREN [Concomitant]
     Indication: HYPERTENSION
  25. SALINE [Concomitant]
     Dosage: 231 MMOL MILLIMOLE(S), DAILY DOSE
     Dates: start: 20101026, end: 20101101
  26. SALINE [Concomitant]
     Dosage: 77 MMOL MILLIMOLE(S), DAILY DOSE
     Dates: start: 20101102, end: 20101102
  27. SALINE [Concomitant]
     Dosage: 231 MMOL MILLIMOLE(S), DAILY DOSE
     Dates: start: 20101112, end: 20101112
  28. SALINE [Concomitant]
     Dosage: 154 MMOL MILLIMOLE(S), DAILY DOSE
     Dates: start: 20101113, end: 20101114
  29. SALINE [Concomitant]
     Dosage: 77 MMOL MILLIMOLE(S), DAILY DOSE
     Dates: start: 20101115, end: 20101115
  30. SALINE [Concomitant]
     Dosage: 154 MMOL MILLIMOLE(S), DAILY DOSE
     Dates: start: 20110306, end: 20110306
  31. VIGANTOLETTEN [Concomitant]
     Indication: OSTEOPOROSIS
     Dosage: 1000 IU, DAILY DOSE
     Route: 048
     Dates: start: 20111024, end: 20120714
  32. TOREM [Concomitant]
     Indication: HYPERTENSION
     Dosage: 10 MG MILLIGRAM(S), DAILY DOSE
     Route: 048
     Dates: start: 2011
  33. TOREM [Concomitant]
     Indication: CARDIAC FAILURE
  34. SIMVASTATIN [Concomitant]
     Indication: CORONARY ARTERY DISEASE
     Dosage: 20 MG MILLIGRAM(S), DAILY DOSE
     Route: 048
     Dates: start: 2011

REACTIONS (9)
  - Chronic obstructive pulmonary disease [Recovered/Resolved]
  - Pyrexia [Recovered/Resolved]
  - Weight decreased [Not Recovered/Not Resolved]
  - Back pain [Not Recovered/Not Resolved]
  - Urinary tract infection [Recovered/Resolved]
  - Osteoporosis [Not Recovered/Not Resolved]
  - Spinal osteoarthritis [Not Recovered/Not Resolved]
  - Wrong technique in drug usage process [Unknown]
  - Incorrect drug administration rate [None]
